FAERS Safety Report 24714776 (Version 1)
Quarter: 2024Q4

REPORT INFORMATION
  Report Type: Spontaneous
  Country: CN (occurrence: CN)
  Receive Date: 20241210
  Receipt Date: 20241210
  Transmission Date: 20250115
  Serious: Yes (Other)
  Sender: ALEXION PHARMACEUTICALS
  Company Number: CN-ASTRAZENECA-202412CHN002566CN

PATIENT
  Age: 80 Year

DRUGS (8)
  1. DAPAGLIFLOZIN [Suspect]
     Active Substance: DAPAGLIFLOZIN
     Indication: Cardiac failure
     Dosage: 10 MILLIGRAM, QD
  2. DAPAGLIFLOZIN [Suspect]
     Active Substance: DAPAGLIFLOZIN
     Dosage: 10 MILLIGRAM, QD
     Route: 048
  3. DAPAGLIFLOZIN [Suspect]
     Active Substance: DAPAGLIFLOZIN
     Dosage: 10 MILLIGRAM, QD
  4. DAPAGLIFLOZIN [Suspect]
     Active Substance: DAPAGLIFLOZIN
     Dosage: 10 MILLIGRAM, QD
     Route: 048
  5. MEROPENEM [Suspect]
     Active Substance: MEROPENEM
     Indication: Infection
     Dosage: 0.001 GRAM, TID
  6. MEROPENEM [Suspect]
     Active Substance: MEROPENEM
     Dosage: 0.001 GRAM, TID
     Route: 041
  7. MEROPENEM [Suspect]
     Active Substance: MEROPENEM
     Dosage: 0.001 GRAM, TID
  8. MEROPENEM [Suspect]
     Active Substance: MEROPENEM
     Dosage: 0.001 GRAM, TID
     Route: 041

REACTIONS (8)
  - Hypertension [Recovering/Resolving]
  - Azotaemia [Recovering/Resolving]
  - Type 2 diabetes mellitus [Recovering/Resolving]
  - Cerebral arteriosclerosis [Recovering/Resolving]
  - Muscular weakness [Recovering/Resolving]
  - Pyrexia [Recovering/Resolving]
  - Hyperuricaemia [Recovering/Resolving]
  - Hyperlipidaemia [Recovering/Resolving]
